FAERS Safety Report 4918870-7 (Version None)
Quarter: 2006Q1

REPORT INFORMATION
  Report Type: 
  Country: None (occurrence: None)
  Receive Date: 20060222
  Receipt Date: 20060210
  Transmission Date: 20060701
  Serious: Yes (Hospitalization, Other)
  Sender: FDA-Public Use
  Company Number: PR-MERCK-0602USA04101

PATIENT
  Age: 65 Year
  Sex: Female
  Weight: 82 kg

DRUGS (4)
  1. VIOXX [Suspect]
     Indication: BACK PAIN
     Route: 048
     Dates: start: 20030101, end: 20030101
  2. VIOXX [Suspect]
     Route: 048
     Dates: start: 20030101, end: 20030101
  3. VIOXX [Suspect]
     Indication: MYALGIA
     Route: 048
     Dates: start: 20030101, end: 20030101
  4. VIOXX [Suspect]
     Route: 048
     Dates: start: 20030101, end: 20030101

REACTIONS (6)
  - CARDIAC FAILURE [None]
  - CEREBROVASCULAR ACCIDENT [None]
  - CHEST PAIN [None]
  - DEPRESSION [None]
  - HEADACHE [None]
  - PARALYSIS [None]
